FAERS Safety Report 10012187 (Version 1)
Quarter: 2014Q1

REPORT INFORMATION
  Report Type: Spontaneous
  Country: FR (occurrence: FR)
  Receive Date: 20140314
  Receipt Date: 20140314
  Transmission Date: 20141002
  Serious: Yes (Disabling)
  Sender: FDA-Public Use
  Company Number: FR-GLAXOSMITHKLINE-B0976716A

PATIENT
  Age: 69 Year
  Sex: Male

DRUGS (3)
  1. ALKERAN [Suspect]
     Indication: PRODUCT USED FOR UNKNOWN INDICATION
     Route: 048
     Dates: start: 20101125, end: 201107
  2. VELCADE [Suspect]
     Indication: PLASMA CELL MYELOMA
     Dosage: 3.5MG CYCLIC
     Route: 042
     Dates: start: 20101125, end: 201107
  3. PREDNISONE [Suspect]
     Indication: PRODUCT USED FOR UNKNOWN INDICATION
     Route: 048
     Dates: start: 20101125, end: 201107

REACTIONS (1)
  - Peripheral sensorimotor neuropathy [Recovered/Resolved]
